FAERS Safety Report 11849650 (Version 1)
Quarter: 2015Q4

REPORT INFORMATION
  Report Type: Spontaneous
  Country: GB (occurrence: GB)
  Receive Date: 20151218
  Receipt Date: 20151218
  Transmission Date: 20160305
  Serious: Yes (Other)
  Sender: FDA-Public Use
  Company Number: GB-TEVA-616858ACC

PATIENT
  Age: 67 Year
  Sex: Female
  Weight: 104 kg

DRUGS (17)
  1. CO-AMOXICLAV [Concomitant]
     Active Substance: AMOXICILLIN\CLAVULANIC ACID
     Dosage: 3 DOSAGE FORMS DAILY;
     Dates: start: 20151116, end: 20151123
  2. VALSARTAN. [Concomitant]
     Active Substance: VALSARTAN
     Dosage: 1 DOSAGE FORMS DAILY;
     Dates: start: 20150709
  3. DAPAGLIFLOZIN [Concomitant]
     Active Substance: DAPAGLIFLOZIN
     Dosage: 1 DOSAGE FORMS DAILY;
     Dates: start: 20150709
  4. METFORMIN [Concomitant]
     Active Substance: METFORMIN HYDROCHLORIDE
     Indication: DIABETES MELLITUS
     Dosage: 4 DOSAGE FORMS DAILY;
     Dates: start: 20150709
  5. DIHYDROCODEINE [Concomitant]
     Active Substance: DIHYDROCODEINE
     Dosage: ONE OR TWO TABLETS FOUR TIMES A DAY WHEN REQUIRED
     Dates: start: 20150709
  6. FLUCLOXACILLIN [Concomitant]
     Active Substance: FLUCLOXACILLIN
     Dosage: 4 DOSAGE FORMS DAILY;
     Dates: start: 20151023, end: 20151030
  7. IMIPRAMINE [Concomitant]
     Active Substance: IMIPRAMINE
     Indication: FUNCTIONAL GASTROINTESTINAL DISORDER
     Dosage: 2 DOSAGE FORMS DAILY; 1 DOSAGE FORMS AT NIGHT
     Dates: start: 20150709
  8. ROSUVASTATIN [Concomitant]
     Active Substance: ROSUVASTATIN
     Indication: BLOOD CHOLESTEROL
     Dosage: 1 DOSAGE FORMS DAILY; 1 DOSAGE FORM EVERY NIGHT
     Dates: start: 20150709
  9. CLARITHROMYCIN. [Suspect]
     Active Substance: CLARITHROMYCIN
     Dates: start: 20151116
  10. HUMULIN NOS [Concomitant]
     Active Substance: INSULIN HUMAN
     Dosage: AS DIRECTED
     Route: 058
     Dates: start: 20150709
  11. SOFRADEX [Concomitant]
     Active Substance: DEXAMETHASONE\FRAMYCETIN SULFATE\GRAMICIDIN
     Dosage: USE AS DIRECTED
     Dates: start: 20150709
  12. AMILORIDE HYDROCHLORIDE. [Concomitant]
     Active Substance: AMILORIDE HYDROCHLORIDE
     Indication: BLOOD POTASSIUM
     Dosage: 1 DOSAGE FORMS DAILY; 1 DOSAGE FORM EVERY MORNING
     Dates: start: 20150709
  13. AMITRIPTYLINE HYDROCHLORIDE. [Concomitant]
     Active Substance: AMITRIPTYLINE HYDROCHLORIDE
     Indication: HEADACHE
     Dosage: 3 DOSAGE FORMS DAILY; 3 DOSAGE FORMS AT NIGHT
     Dates: start: 20150709
  14. FUROSEMIDE. [Concomitant]
     Active Substance: FUROSEMIDE
     Indication: JOINT SWELLING
     Dosage: 2 DOSAGE FORMS DAILY; 2 DOSAGE FORMS EVERY MORNING
     Dates: start: 20150709
  15. LANSOPRAZOLE. [Concomitant]
     Active Substance: LANSOPRAZOLE
     Indication: GASTRIC PH DECREASED
     Dosage: 2 DOSAGE FORMS DAILY; 1 DOSAGE FORMS EVERY MORNING
     Dates: start: 20150709
  16. LIDOCAINE. [Concomitant]
     Active Substance: LIDOCAINE
     Dosage: USE AS DIRECTED
     Dates: start: 20151023, end: 20151024
  17. TETRALYSAL [Concomitant]
     Active Substance: LYMECYCLINE
     Dosage: 1 DOSAGE FORMS DAILY;
     Dates: start: 20150709

REACTIONS (3)
  - Vertigo [Recovered/Resolved]
  - Dyspnoea [Recovered/Resolved]
  - Syncope [Recovered/Resolved]

NARRATIVE: CASE EVENT DATE: 20151130
